FAERS Safety Report 18088351 (Version 1)
Quarter: 2020Q3

REPORT INFORMATION
  Report Type: Spontaneous
  Country: JP (occurrence: JP)
  Receive Date: 20200729
  Receipt Date: 20200729
  Transmission Date: 20201103
  Serious: Yes (Other)
  Sender: FDA-Public Use
  Company Number: JP-ABBVIE-20K-087-3501331-00

PATIENT
  Age: 76 Year
  Sex: Male

DRUGS (1)
  1. POPSCAINE [Suspect]
     Active Substance: LEVOBUPIVACAINE HYDROCHLORIDE
     Indication: PRODUCT USED FOR UNKNOWN INDICATION
     Dosage: 0.25% INJ.BAG 250MG/100ML
     Route: 065
     Dates: start: 201702, end: 201702

REACTIONS (2)
  - Monoplegia [Unknown]
  - Anorectal disorder [Unknown]
